FAERS Safety Report 25455744 (Version 1)
Quarter: 2025Q2

REPORT INFORMATION
  Report Type: Spontaneous
  Country: TW (occurrence: TW)
  Receive Date: 20250619
  Receipt Date: 20250619
  Transmission Date: 20250716
  Serious: Yes (Other)
  Sender: SANDOZ
  Company Number: None

PATIENT
  Age: 53 Year
  Sex: Male
  Weight: 59 kg

DRUGS (1)
  1. AMOXICILLIN\CLAVULANATE POTASSIUM [Suspect]
     Active Substance: AMOXICILLIN\CLAVULANATE POTASSIUM
     Indication: Infection
     Dosage: 1 G, Q12H 125.0MG/8 75.0MG
     Route: 048
     Dates: start: 20250604, end: 20250611

REACTIONS (1)
  - Cutaneous symptom [Recovering/Resolving]

NARRATIVE: CASE EVENT DATE: 20250608
